FAERS Safety Report 18974283 (Version 2)
Quarter: 2021Q3

REPORT INFORMATION
  Report Type: Spontaneous
  Country: CA (occurrence: CA)
  Receive Date: 20210305
  Receipt Date: 20210929
  Transmission Date: 20211014
  Serious: Yes (Other)
  Sender: FDA-Public Use
  Company Number: CA-PFIZER INC-2020229457

PATIENT
  Age: 78 Year
  Sex: Female

DRUGS (4)
  1. XELJANZ [Suspect]
     Active Substance: TOFACITINIB CITRATE
     Indication: RHEUMATOID ARTHRITIS
     Dosage: 5 MG, 2X/DAY
     Route: 048
     Dates: start: 20200507
  2. SULFASALAZINE. [Concomitant]
     Active Substance: SULFASALAZINE
     Dosage: 1500 MG, DAILY
     Route: 048
     Dates: start: 2005
  3. METHOTREXATE. [Concomitant]
     Active Substance: METHOTREXATE
     Dosage: 0.3 ML, WEEKLY
  4. METHOTREXATE. [Concomitant]
     Active Substance: METHOTREXATE
     Dosage: 17.5 MG, WEEKLY
     Route: 058
     Dates: start: 2002

REACTIONS (8)
  - Nerve injury [Unknown]
  - Cough [Unknown]
  - Anal incontinence [Unknown]
  - Frequent bowel movements [Unknown]
  - Vaginal infection [Recovering/Resolving]
  - Back disorder [Unknown]
  - Nausea [Unknown]
  - Diarrhoea [Unknown]

NARRATIVE: CASE EVENT DATE: 2021
